FAERS Safety Report 5441209-8 (Version None)
Quarter: 2007Q3

REPORT INFORMATION
  Report Type: 
  Country: None (occurrence: None)
  Receive Date: 20070901
  Receipt Date: 20070822
  Transmission Date: 20080115
  Serious: Yes (Other)
  Sender: FDA-Public Use
  Company Number: US-PFIZER INC-2007070469

PATIENT
  Sex: Female
  Weight: 52.727 kg

DRUGS (4)
  1. CHANTIX [Suspect]
     Indication: SMOKING CESSATION THERAPY
     Dates: start: 20070721, end: 20070818
  2. LIPITOR [Suspect]
     Indication: BLOOD CHOLESTEROL
  3. WELLBUTRIN [Suspect]
     Indication: SMOKING CESSATION THERAPY
  4. DIOVAN [Concomitant]

REACTIONS (2)
  - HYPERSENSITIVITY [None]
  - RASH PRURITIC [None]
